FAERS Safety Report 24428525 (Version 1)
Quarter: 2024Q4

REPORT INFORMATION
  Report Type: Spontaneous
  Country: AU (occurrence: AU)
  Receive Date: 20241011
  Receipt Date: 20241011
  Transmission Date: 20250115
  Serious: Yes (Other)
  Sender: BIOVITRUM
  Company Number: AU-BIOVITRUM-2024-AU-012909

PATIENT
  Age: 21 Year
  Sex: Female

DRUGS (7)
  1. ANAKINRA [Suspect]
     Active Substance: ANAKINRA
     Indication: Haemophagocytic lymphohistiocytosis
  2. ANAKINRA [Suspect]
     Active Substance: ANAKINRA
     Indication: Diffuse large B-cell lymphoma
  3. CYCLOSPORINE [Suspect]
     Active Substance: CYCLOSPORINE
     Indication: Product used for unknown indication
  4. DEXAMETHASONE [Concomitant]
     Active Substance: DEXAMETHASONE
     Indication: Product used for unknown indication
  5. ETOPOSIDE [Concomitant]
     Active Substance: ETOPOSIDE
     Indication: Product used for unknown indication
  6. YESCARTA [Concomitant]
     Active Substance: AXICABTAGENE CILOLEUCEL
     Indication: Product used for unknown indication
  7. PEMBROLIZUMAB [Concomitant]
     Active Substance: PEMBROLIZUMAB
     Indication: Product used for unknown indication
     Dosage: ONCE DAILY

REACTIONS (8)
  - Off label use [Unknown]
  - Haemophagocytic lymphohistiocytosis [Recovering/Resolving]
  - Escherichia bacteraemia [Recovering/Resolving]
  - Parainfluenzae virus infection [Recovering/Resolving]
  - Cytomegalovirus infection reactivation [Recovering/Resolving]
  - Fungal infection [Recovering/Resolving]
  - Cytopenia [Recovering/Resolving]
  - Condition aggravated [Recovering/Resolving]
